FAERS Safety Report 24767828 (Version 1)
Quarter: 2024Q4

REPORT INFORMATION
  Report Type: Spontaneous
  Country: US (occurrence: US)
  Receive Date: 20241223
  Receipt Date: 20241223
  Transmission Date: 20250114
  Serious: No
  Sender: MERCK
  Company Number: US-009507513-2412USA007120

PATIENT
  Age: 58 Year
  Sex: Male

DRUGS (2)
  1. KEYTRUDA [Suspect]
     Active Substance: PEMBROLIZUMAB
     Indication: Pineocytoma
  2. TEMODAR [Suspect]
     Active Substance: TEMOZOLOMIDE
     Indication: Pineocytoma
     Route: 048

REACTIONS (1)
  - Off label use [Unknown]
